FAERS Safety Report 13842557 (Version 1)
Quarter: 2017Q3

REPORT INFORMATION
  Report Type: Spontaneous
  Country: US (occurrence: US)
  Receive Date: 20170807
  Receipt Date: 20170807
  Transmission Date: 20171127
  Serious: Yes (Hospitalization, Other)
  Sender: FDA-Public Use
  Company Number: None

PATIENT
  Age: 64 Year
  Sex: Female
  Weight: 105.7 kg

DRUGS (3)
  1. TRAZODONE [Concomitant]
     Active Substance: TRAZODONE HYDROCHLORIDE
  2. DONEPEZIL. [Concomitant]
     Active Substance: DONEPEZIL
  3. AMITRIPTYLINE [Suspect]
     Active Substance: AMITRIPTYLINE
     Indication: ANXIETY
     Route: 048
     Dates: start: 20170703, end: 20170717

REACTIONS (6)
  - Anxiety [None]
  - Encephalitis [None]
  - Memory impairment [None]
  - Disinhibition [None]
  - Insomnia [None]
  - Hypersexuality [None]

NARRATIVE: CASE EVENT DATE: 20170706
